FAERS Safety Report 20904620 (Version 1)
Quarter: 2022Q2

REPORT INFORMATION
  Report Type: Spontaneous
  Country: RU (occurrence: None)
  Receive Date: 20220602
  Receipt Date: 20220602
  Transmission Date: 20220721
  Serious: Yes (Other)
  Sender: FDA-Public Use
  Company Number: RU-ROCHE-3104595

PATIENT
  Sex: Male

DRUGS (2)
  1. VEMURAFENIB [Suspect]
     Active Substance: VEMURAFENIB
     Indication: Malignant melanoma
     Route: 065
     Dates: start: 20211213
  2. COBIMETINIB [Suspect]
     Active Substance: COBIMETINIB
     Indication: Malignant melanoma
     Route: 065
     Dates: start: 20211213

REACTIONS (16)
  - Lipodystrophy acquired [Unknown]
  - Hepatic steatosis [Unknown]
  - Blood glucose increased [Unknown]
  - Skin toxicity [Unknown]
  - Blood creatine phosphokinase increased [Unknown]
  - Blood bilirubin increased [Unknown]
  - Diarrhoea [Unknown]
  - Blood pressure increased [Unknown]
  - Hyperkeratosis [Unknown]
  - Rash pustular [Unknown]
  - Erythema [Unknown]
  - Asthenia [Unknown]
  - Seborrhoeic keratosis [Unknown]
  - Dry skin [Unknown]
  - Skin exfoliation [Unknown]
  - Papilloma [Unknown]
